FAERS Safety Report 6614368-9 (Version None)
Quarter: 2010Q1

REPORT INFORMATION
  Report Type: 
  Country: None (occurrence: None)
  Receive Date: 20100304
  Receipt Date: 20100225
  Transmission Date: 20100710
  Serious: Yes (Other)
  Sender: FDA-Public Use
  Company Number: US-B.I. PHARMACEUTICALS,INC./RIDGEFIELD-2010-BP-02330BP

PATIENT
  Sex: Female

DRUGS (5)
  1. ZANTAC 75 [Suspect]
     Indication: GASTROOESOPHAGEAL REFLUX DISEASE
     Dosage: 150 MG
     Route: 048
     Dates: start: 20070101
  2. EVISTA [Concomitant]
     Indication: OSTEOPOROSIS
  3. LIPITOR [Concomitant]
     Indication: BLOOD CHOLESTEROL INCREASED
  4. ADVAIR DISKUS 100/50 [Concomitant]
     Indication: ASTHMA
  5. VERAPAMIL [Concomitant]
     Indication: AORTIC STENOSIS

REACTIONS (3)
  - NASOPHARYNGITIS [None]
  - PERICARDIAL EFFUSION [None]
  - POSTNASAL DRIP [None]
